FAERS Safety Report 16423683 (Version 1)
Quarter: 2019Q2

REPORT INFORMATION
  Report Type: Spontaneous
  Country: NL (occurrence: NL)
  Receive Date: 20190613
  Receipt Date: 20190613
  Transmission Date: 20190711
  Serious: Yes (Life-Threatening)
  Sender: FDA-Public Use
  Company Number: NL-TEVA-2019-NL-1060897

PATIENT
  Age: 61 Year
  Sex: Male
  Weight: 160 kg

DRUGS (18)
  1. AMLODIPINE TABLET 5MG (ORAAL) [Concomitant]
     Dosage: 10 MILLIGRAM DAILY; 1 X PER DAY 10 MILLIGRAM
     Route: 048
  2. GLICLAZIDE TABLET MGA 30MG (ORAAL), [Concomitant]
     Dosage: 30 MILLIGRAM DAILY; 1 X PER DAY  30 MILLIGRAM
     Route: 048
  3. ACETYLSALICYLZUUR DISPERTABLET 80MG (ORAAL) [Concomitant]
     Dosage: 80 MILLIGRAM DAILY; 1 X PER DAY 80 MILLIGRAM
     Route: 048
  4. ENALAPRIL TABLET 10MG (ORAAL), [Concomitant]
     Dosage: 40 MILLIGRAM DAILY; 1 X PER DAY 40 MILLIGRAM
     Route: 048
  5. AMOXICILLINE/CLAVULAANZUUR TABLET, 500/125 MG (MILLIGRAM) [Interacting]
     Active Substance: AMOXICILLIN\CLAVULANATE POTASSIUM
     Indication: ERYSIPELAS
  6. CIPROFLOXACINE TABLET, 500 MG (MILLIGRAM) [Interacting]
     Active Substance: CIPROFLOXACIN
     Indication: ERYSIPELAS
  7. EZETIMIB TABLET 10MG (ORAAL), [Concomitant]
     Dosage: 10 MILLIGRAM DAILY; 1 X PER DAY10 MILLIGRAM
     Route: 048
  8. FUROSEMIDE TABLET 40MG (ORAAL), [Concomitant]
     Dosage: 40 MILLIGRAM DAILY; 1 X PER DAY 40 MILLIGRAM
     Route: 048
  9. CIPROFLOXACINE TABLET, 500 MG (MILLIGRAM) [Interacting]
     Active Substance: CIPROFLOXACIN
     Indication: URINARY TRACT INFECTION
     Dosage: 2DD1
     Dates: start: 20190506, end: 20190507
  10. FLUCLOXACILLINE CAPSULE, 500 MG (MILLIGRAM) [Interacting]
     Active Substance: FLUCLOXACILLIN
     Indication: ERYSIPELAS
     Dosage: 3DD1
     Dates: start: 20190504, end: 20190505
  11. METOPROLOL TABLET MGA 100MG (SUCCINAAT) (ORAAL), [Concomitant]
     Dosage: 100 MILLIGRAM DAILY; 1 X PER DAY100 MILLIGRAM
     Route: 048
  12. OMEPRAZOL CAPSULE MSR 20MG (ORAAL) [Concomitant]
     Dosage: 20 MILLIGRAM DAILY; 1 X PER DAY 20 MILLIGRAM
     Route: 048
  13. METFORMINE TABLET 500MG (ORAAL) [Concomitant]
     Dosage: 2 X PER DAY 500 MILLIGRAM
  14. NIFEDIPINE TABLET MGA 30MG (ORAAL), [Concomitant]
     Dosage: 30 MILLIGRAM DAILY; 1 X PER DAY 30 MILLIGRAM
     Route: 048
  15. TAVEGYL (CLEMASTINE) TABLET, 1 MG (MILLIGRAM) [Interacting]
     Active Substance: CLEMASTINE
     Indication: HYPERSENSITIVITY
     Dosage: 2DD1
     Dates: start: 20190506, end: 20190507
  16. NITROGLYCERINE SPRAY SUBLING. 0,4MG/DO FL 250DO (SUBLINGUAAL), [Concomitant]
     Dosage: IF NECESSARY WITH COMPLAINTS 1-2 SPRAYS UNDER THE TONGUE WITH COMPLAINTS 1-2 SPRAYS UNDER THE TONGUE
  17. AMOXICILLINE/CLAVULAANZUUR TABLET, 500/125 MG (MILLIGRAM) [Suspect]
     Active Substance: AMOXICILLIN\CLAVULANATE POTASSIUM
     Indication: URINARY TRACT INFECTION
     Dosage: 3DD1
     Dates: start: 20190505, end: 20190506
  18. ROSUVASTATINE TABLET FO 10MG (ALS CA-ZOUT) (ORAAL), [Concomitant]
     Dosage: 20 MILLIGRAM DAILY; 1 X PER DAY 20 MILLIGRAM

REACTIONS (3)
  - Drug interaction [Recovered/Resolved]
  - Ventricular tachycardia [Recovered/Resolved]
  - Ventricular extrasystoles [Recovered/Resolved]

NARRATIVE: CASE EVENT DATE: 20190507
